FAERS Safety Report 24943013 (Version 1)
Quarter: 2025Q1

REPORT INFORMATION
  Report Type: Other
  Country: US (occurrence: US)
  Receive Date: 20250207
  Receipt Date: 20250207
  Transmission Date: 20250408
  Serious: Yes (Hospitalization, Other)
  Sender: Apozeal Pharmaceuticals
  Company Number: US-Apozeal Pharmaceuticals-2170694

PATIENT
  Age: 49 Year
  Sex: Male

DRUGS (2)
  1. LACTULOSE [Suspect]
     Active Substance: LACTULOSE
     Indication: Encephalopathy
  2. RIFAXIMIN [Concomitant]
     Active Substance: RIFAXIMIN

REACTIONS (1)
  - Colitis ischaemic [Unknown]
